FAERS Safety Report 7561681-7 (Version None)
Quarter: 2011Q2

REPORT INFORMATION
  Report Type: 
  Country: None (occurrence: None)
  Receive Date: 20110621
  Receipt Date: 20100811
  Transmission Date: 20111010
  Serious: No
  Sender: FDA-Public Use
  Company Number: US-ASTRAZENECA-2010SE37771

PATIENT
  Sex: Female

DRUGS (4)
  1. RHINOCORT [Suspect]
     Dosage: 64 MCG
     Route: 045
     Dates: start: 20080101
  2. KEPPRA [Concomitant]
  3. NEXIUM [Concomitant]
  4. MYSOLINE [Concomitant]

REACTIONS (3)
  - NASAL CONGESTION [None]
  - OROPHARYNGEAL PAIN [None]
  - RHINORRHOEA [None]
